FAERS Safety Report 5787357-4 (Version None)
Quarter: 2008Q2

REPORT INFORMATION
  Report Type: 
  Country: None (occurrence: None)
  Receive Date: 20080625
  Receipt Date: 20080530
  Transmission Date: 20081010
  Serious: Yes (Hospitalization)
  Sender: FDA-Public Use
  Company Number: GB-AMGEN-UK284507

PATIENT
  Sex: Female
  Weight: 86 kg

DRUGS (2)
  1. NEULASTA [Suspect]
     Indication: CHEMOTHERAPY
     Dates: start: 20080522
  2. EPIRUBICIN [Suspect]
     Dates: start: 20080522

REACTIONS (1)
  - ACUTE CORONARY SYNDROME [None]
